FAERS Safety Report 8434107-9 (Version None)
Quarter: 2012Q2

REPORT INFORMATION
  Report Type: 
  Country: None (occurrence: None)
  Receive Date: 20120613
  Receipt Date: 20120604
  Transmission Date: 20120825
  Serious: No
  Sender: FDA-Public Use
  Company Number: US-B.I. PHARMACEUTICALS,INC./RIDGEFIELD-2012-BP-13005BP

PATIENT
  Sex: Male

DRUGS (4)
  1. ANAPRIL [Concomitant]
     Indication: HYPERTENSION
  2. EPINEPHRINE [Concomitant]
     Indication: HYPERSENSITIVITY
     Route: 030
  3. JENTADUETO [Suspect]
     Indication: TYPE 2 DIABETES MELLITUS
     Route: 048
     Dates: start: 20120530, end: 20120602
  4. ANAPRIL [Concomitant]
     Indication: PROPHYLAXIS
     Route: 048

REACTIONS (4)
  - DIARRHOEA [None]
  - DYSPHAGIA [None]
  - MUSCLE SPASMS [None]
  - CHILLS [None]
